FAERS Safety Report 10642657 (Version 1)
Quarter: 2014Q4

REPORT INFORMATION
  Report Type: Spontaneous
  Country: US (occurrence: None)
  Receive Date: 20141208
  Receipt Date: 20141208
  Transmission Date: 20150529
  Serious: Yes (Life-Threatening, Other)
  Sender: FDA-Public Use
  Company Number: None

PATIENT
  Age: 27 Year
  Sex: Female
  Weight: 81.65 kg

DRUGS (1)
  1. INDERAL [Suspect]
     Active Substance: PROPRANOLOL HYDROCHLORIDE
     Indication: MIGRAINE
     Route: 048
     Dates: start: 20141203, end: 20141203

REACTIONS (9)
  - Back pain [None]
  - Bowel movement irregularity [None]
  - Nervous system disorder [None]
  - Pain [None]
  - Feeling abnormal [None]
  - Urinary incontinence [None]
  - Loss of consciousness [None]
  - Chest pain [None]
  - Hypersomnia [None]

NARRATIVE: CASE EVENT DATE: 20141204
